FAERS Safety Report 8455587-9 (Version None)
Quarter: 2012Q2

REPORT INFORMATION
  Report Type: 
  Country: None (occurrence: None)
  Receive Date: 20120621
  Receipt Date: 20120611
  Transmission Date: 20120825
  Serious: Yes (Other)
  Sender: FDA-Public Use
  Company Number: US-VERTEX PHARMACEUTICALS INC.-AE-2012-008773

PATIENT
  Sex: Female

DRUGS (6)
  1. RIBAVIRIN [Concomitant]
     Indication: HEPATITIS C
     Route: 048
     Dates: start: 20120524
  2. MULTI-VITAMIN [Concomitant]
     Indication: MEDICAL DIET
  3. PEGASYS [Concomitant]
     Indication: HEPATITIS C
     Route: 058
     Dates: start: 20120524
  4. PROZAC [Concomitant]
     Indication: DEPRESSION
     Route: 048
  5. BIOTIN [Concomitant]
     Indication: MEDICAL DIET
  6. INCIVEK [Suspect]
     Indication: HEPATITIS C
     Route: 048
     Dates: start: 20120502

REACTIONS (11)
  - AGITATION [None]
  - DYSPHONIA [None]
  - ANORECTAL DISCOMFORT [None]
  - DIARRHOEA [None]
  - INGROWN HAIR [None]
  - DRY THROAT [None]
  - ANAL PRURITUS [None]
  - DRUG ABUSE [None]
  - OROPHARYNGEAL PAIN [None]
  - ROAD TRAFFIC ACCIDENT [None]
  - NAUSEA [None]
